FAERS Safety Report 6390623-5 (Version None)
Quarter: 2009Q4

REPORT INFORMATION
  Report Type: 
  Country: None (occurrence: None)
  Receive Date: 20091006
  Receipt Date: 20090929
  Transmission Date: 20100525
  Serious: Yes (Other)
  Sender: FDA-Public Use
  Company Number: US-AVENTIS-200917241US

PATIENT
  Sex: Female
  Weight: 56.69 kg

DRUGS (13)
  1. LOVENOX [Suspect]
     Indication: PROPHYLAXIS
     Dates: start: 20080301, end: 20090101
  2. LOVENOX [Suspect]
     Route: 051
     Dates: start: 20090101
  3. OMEPRAZOLE [Concomitant]
  4. OMEPRAZOLE [Concomitant]
  5. ATENOLOL [Concomitant]
  6. LISINOPRIL [Concomitant]
     Indication: HYPERTENSION
  7. LISINOPRIL [Concomitant]
  8. FUROSEMIDE [Concomitant]
  9. FUROSEMIDE [Concomitant]
     Indication: FLUID RETENTION
  10. TYLENOL (CAPLET) [Concomitant]
     Dosage: DOSE: UNK
  11. OCUVITE                            /01053801/ [Concomitant]
     Indication: EYE DISORDER
  12. FOLGARD VITAMIN [Concomitant]
     Dosage: DOSE: UNK
  13. LOVASTATIN [Concomitant]
     Dosage: DOSE: UNK

REACTIONS (6)
  - INJECTION SITE HAEMATOMA [None]
  - MACULAR DEGENERATION [None]
  - VISION BLURRED [None]
  - VISUAL IMPAIRMENT [None]
  - WEIGHT DECREASED [None]
  - WRONG TECHNIQUE IN DRUG USAGE PROCESS [None]
